FAERS Safety Report 10229609 (Version 1)
Quarter: 2014Q2

REPORT INFORMATION
  Report Type: Report from Study
  Country: US (occurrence: None)
  Receive Date: 20140609
  Receipt Date: 20140609
  Transmission Date: 20141212
  Serious: Yes (Hospitalization)
  Sender: FDA-Public Use
  Company Number: 2014US003336

PATIENT
  Age: 69 Year
  Sex: Male
  Weight: 87 kg

DRUGS (28)
  1. PONATINIB [Suspect]
     Indication: CHRONIC MYELOID LEUKAEMIA
     Route: 048
     Dates: start: 20110620, end: 20140508
  2. ALLOPURINOL (ALLOPURINOL) [Concomitant]
  3. SIMVASTATIN (SIMVASTATIN) [Concomitant]
  4. CARVEDILOL (CARVEDILOL) [Concomitant]
  5. AMBIEN (ZOLPIDEM TARTRATE) [Concomitant]
  6. PLAVIX (CLOPIDOGREL BISULFATE) (CLOPIDOGREL BISULFATE) [Concomitant]
  7. ASPIRIN (ASPIRIN) [Concomitant]
  8. ARTIFICIAL TEARS (HYPROMELLOSE) [Concomitant]
  9. SARNA (CAMPHOR, MENTHOL) [Concomitant]
  10. ERYTHROMYCIN (ERYTHROMYCIN) [Concomitant]
  11. DOCUSATE W/SENNA (DOCUSATE W/SENNA) [Concomitant]
  12. DIPHENHYDRAMINE (DIPHENHYDRAMINE) [Concomitant]
  13. METAMUCIL (PSYLLIUM HYDROPHILLIC MUCILLOID) [Concomitant]
  14. SENNA (SENNA) [Concomitant]
  15. SIMETHICONE (SIMETHICONE) [Concomitant]
  16. MINERAL OIL (MINERAL OIL EMULSION) [Concomitant]
  17. SALINE LAXATIVE [Concomitant]
  18. TYLENOL (PARACETAMOL) [Concomitant]
  19. DALTEPARIN (DALTEPARIN) [Concomitant]
  20. MIRALAX (MACROGOL) [Concomitant]
  21. PROTONIX (PANTOPRAZOLE SODIUM SESQUIHYDRATE) [Concomitant]
  22. LACTULOSE (LACTULOSE) [Concomitant]
  23. MAGNESIUM CITRATE (MAGNESIUM CITRATE) [Concomitant]
  24. METHYLNALTREXONE (METHYLNALTREXONE) [Concomitant]
  25. AMPICILLIN (AMPICILLIN SODIUM) [Concomitant]
  26. PROCHLORPERAZINE (PROCHLORPERAZINE) [Concomitant]
  27. ISOSORBIDE DINITRATE (ISOSORBIDE DINITRATE) [Concomitant]
  28. OXYCODONE (OXYCODONE) [Concomitant]

REACTIONS (7)
  - Mitral valve incompetence [None]
  - Angina unstable [None]
  - Ventricular hypokinesia [None]
  - Systolic dysfunction [None]
  - Pulmonary hypertension [None]
  - Coronary artery occlusion [None]
  - Coronary artery restenosis [None]
